FAERS Safety Report 18410786 (Version 2)
Quarter: 2021Q1

REPORT INFORMATION
  Report Type: Spontaneous
  Country: US (occurrence: US)
  Receive Date: 20201021
  Receipt Date: 20210202
  Transmission Date: 20210419
  Serious: No
  Sender: FDA-Public Use
  Company Number: US-BIO PRODUCTS LABORATORY LTD-2092992

PATIENT
  Age: 62 Year
  Sex: Female
  Weight: 72.6 kg

DRUGS (9)
  1. LOSARTAN. [Concomitant]
     Active Substance: LOSARTAN
  2. DIPHENHYDRAMINE. [Concomitant]
     Active Substance: DIPHENHYDRAMINE
  3. LOTEPREDNOL EYE DROPS [Concomitant]
  4. XANAX [Concomitant]
     Active Substance: ALPRAZOLAM
  5. TOBRAMYCIN EYEDROPS [Concomitant]
  6. DUEXIS [Concomitant]
     Active Substance: FAMOTIDINE\IBUPROFEN
  7. MIRALAX [Concomitant]
     Active Substance: POLYETHYLENE GLYCOL 3350
  8. GAMMAPLEX [Suspect]
     Active Substance: HUMAN IMMUNOGLOBULIN G
     Indication: CHRONIC INFLAMMATORY DEMYELINATING POLYRADICULONEUROPATHY
     Route: 042
     Dates: start: 20200805
  9. GABAPENTIN. [Concomitant]
     Active Substance: GABAPENTIN

REACTIONS (6)
  - Pyrexia [Recovered/Resolved]
  - Lymphadenopathy [Recovered/Resolved]
  - Neck pain [Recovered/Resolved]
  - Headache [Recovered/Resolved]
  - Back pain [Recovered/Resolved]
  - Off label use [Unknown]
